FAERS Safety Report 5909655-3 (Version None)
Quarter: 2008Q4

REPORT INFORMATION
  Report Type: 
  Country: None (occurrence: None)
  Receive Date: 20081002
  Receipt Date: 20080917
  Transmission Date: 20090506
  Serious: Yes (Hospitalization)
  Sender: FDA-Public Use
  Company Number: CIP08001938

PATIENT
  Age: 29 Year
  Sex: Female

DRUGS (5)
  1. ASACOL [Suspect]
     Indication: CROHN'S DISEASE
     Dosage: 2000 MG TWICE DAILY, ORAL
     Route: 048
  2. MERCAPTOPURINE [Suspect]
     Indication: CROHN'S DISEASE
     Dosage: 150 MG, DAILY, ORAL
     Route: 048
  3. PREDNISONE [Concomitant]
  4. CHLORDIAZEPOXIDE HCL AND CLIDINIUM [Concomitant]
  5. BROMIDE (CHLORDIAZEPOXIDE HYDROCHLORIDE, CLIDINIUM BROMIDE) [Concomitant]

REACTIONS (12)
  - ASPARTATE AMINOTRANSFERASE INCREASED [None]
  - BLOOD BILIRUBIN INCREASED [None]
  - BLOOD LACTATE DEHYDROGENASE INCREASED [None]
  - DRUG INTERACTION [None]
  - FATIGUE [None]
  - HAEMOGLOBIN DECREASED [None]
  - HYPOPHAGIA [None]
  - LIP EROSION [None]
  - LIP PAIN [None]
  - NAUSEA [None]
  - PALMAR-PLANTAR ERYTHRODYSAESTHESIA SYNDROME [None]
  - WHITE BLOOD CELL COUNT DECREASED [None]
